FAERS Safety Report 20769659 (Version 1)
Quarter: 2022Q2

REPORT INFORMATION
  Report Type: Report from Study
  Country: US (occurrence: US)
  Receive Date: 20220429
  Receipt Date: 20220429
  Transmission Date: 20220721
  Serious: Yes (Hospitalization, Other)
  Sender: FDA-Public Use
  Company Number: US-BRISTOL-MYERS SQUIBB COMPANY-2022-027157

PATIENT
  Age: 66 Year
  Sex: Male
  Weight: 67.5 kg

DRUGS (1)
  1. LUSPATERCEPT [Suspect]
     Active Substance: LUSPATERCEPT
     Indication: Myelodysplastic syndrome
     Dosage: 3 CYCLES
     Route: 065

REACTIONS (3)
  - Peripheral artery occlusion [Unknown]
  - Peripheral ischaemia [Unknown]
  - Embolism arterial [Unknown]

NARRATIVE: CASE EVENT DATE: 20220420
